FAERS Safety Report 10286366 (Version 2)
Quarter: 2014Q3

REPORT INFORMATION
  Report Type: Spontaneous
  Country: JP (occurrence: JP)
  Receive Date: 20140709
  Receipt Date: 20140722
  Transmission Date: 20150326
  Serious: Yes (Death)
  Sender: FDA-Public Use
  Company Number: JP-ROCHE-1429985

PATIENT
  Age: 8 Decade
  Sex: Male

DRUGS (1)
  1. MIRCERA [Suspect]
     Active Substance: PEGZEREPOETIN ALFA
     Indication: NEPHROGENIC ANAEMIA
     Route: 042

REACTIONS (1)
  - Death [Fatal]
